FAERS Safety Report 11966720 (Version 4)
Quarter: 2016Q2

REPORT INFORMATION
  Report Type: Spontaneous
  Country: JP (occurrence: JP)
  Receive Date: 20160127
  Receipt Date: 20160606
  Transmission Date: 20160815
  Serious: No
  Sender: FDA-Public Use
  Company Number: PHJP2016JP001504

PATIENT
  Sex: Female
  Weight: 47 kg

DRUGS (4)
  1. ALDOMET [Suspect]
     Active Substance: METHYLDOPA
     Indication: GESTATIONAL HYPERTENSION
     Dosage: 250 MG, BID
     Route: 048
     Dates: start: 20150901, end: 20150902
  2. APRESOLINE HYDROCHLORIDE [Suspect]
     Active Substance: HYDRALAZINE HYDROCHLORIDE
     Indication: GESTATIONAL HYPERTENSION
     Dosage: 10 MG, TID
     Route: 048
     Dates: start: 20150728, end: 20150902
  3. UTEMERIN [Suspect]
     Active Substance: RITODRINE
     Indication: PRODUCT USED FOR UNKNOWN INDICATION
     Dosage: 5 MG, TID
     Route: 048
     Dates: start: 20150729, end: 20150902
  4. PREDONINE [Suspect]
     Active Substance: PREDNISOLONE\PREDNISOLONE ACETATE\PREDNISOLONE SODIUM SUCCINATE
     Indication: MYASTHENIA GRAVIS
     Dosage: 10 MG, QD
     Route: 048
     Dates: start: 20150902

REACTIONS (1)
  - Maternal exposure during pregnancy [Unknown]
